FAERS Safety Report 21670863 (Version 1)
Quarter: 2022Q4

REPORT INFORMATION
  Report Type: Spontaneous
  Country: IN (occurrence: IN)
  Receive Date: 20221202
  Receipt Date: 20221202
  Transmission Date: 20230112
  Serious: Yes (Hospitalization, Other)
  Sender: FDA-Public Use
  Company Number: IN-BAXTER-2022BAX025543

PATIENT
  Sex: Male

DRUGS (4)
  1. MIDAZOLAM [Suspect]
     Active Substance: MIDAZOLAM
     Indication: Sedative therapy
     Dosage: DOSE OF 0.1 MG/ KG, DILUTED IN 1 ML OF 5% DEXTROSE SOLUTION SLOWLY OVER 2-3 MINUTES
     Route: 042
  2. MIDAZOLAM [Suspect]
     Active Substance: MIDAZOLAM
     Dosage: 0.1 MG/KG
     Route: 042
  3. DEXTROSE [Suspect]
     Active Substance: DEXTROSE
     Indication: Medication dilution
     Dosage: 1 ML OF 5 % DEXTROSE
     Route: 042
  4. TROPICAMIDE [Concomitant]
     Active Substance: TROPICAMIDE
     Indication: Mydriasis
     Dosage: 0.8%
     Route: 065

REACTIONS (2)
  - Dyskinesia [Recovered/Resolved]
  - Partial seizures [Recovered/Resolved]
